FAERS Safety Report 17847975 (Version 1)
Quarter: 2020Q2

REPORT INFORMATION
  Report Type: Spontaneous
  Country: US (occurrence: US)
  Receive Date: 20200601
  Receipt Date: 20200601
  Transmission Date: 20200714
  Serious: Yes (Hospitalization)
  Sender: FDA-Public Use
  Company Number: US-GE HEALTHCARE LIFE SCIENCES-2020CSU002183

PATIENT
  Age: 72 Year
  Sex: Female

DRUGS (7)
  1. OMNIPAQUE [Suspect]
     Active Substance: IOHEXOL
     Indication: ANGIOGRAM
  2. OMNIPAQUE [Suspect]
     Active Substance: IOHEXOL
     Indication: STENT PLACEMENT
  3. OMNIPAQUE [Suspect]
     Active Substance: IOHEXOL
     Indication: CORONARY ARTERY OCCLUSION
  4. CLOPIDOGREL [Concomitant]
     Active Substance: CLOPIDOGREL BISULFATE
     Indication: CARDIOMYOPATHY
     Dosage: 600 MG
  5. ASPIRIN [ACETYLSALICYLIC ACID] [Concomitant]
     Active Substance: ASPIRIN
     Indication: CARDIOMYOPATHY
     Dosage: 81 MG
  6. OMNIPAQUE [Suspect]
     Active Substance: IOHEXOL
     Indication: PERCUTANEOUS CORONARY INTERVENTION
     Dosage: UNK UNK, SINGLE
     Route: 013
  7. OMNIPAQUE [Suspect]
     Active Substance: IOHEXOL
     Indication: CORONARY ANGIOPLASTY

REACTIONS (1)
  - Contrast encephalopathy [Recovered/Resolved]
